FAERS Safety Report 15315506 (Version 1)
Quarter: 2018Q3

REPORT INFORMATION
  Report Type: Spontaneous
  Country: US (occurrence: US)
  Receive Date: 20180815
  Receipt Date: 20180815
  Transmission Date: 20181010
  Serious: Yes (Hospitalization)
  Sender: FDA-Public Use
  Company Number: None

PATIENT
  Age: 62 Year
  Sex: Male

DRUGS (6)
  1. NAPROXEN. [Concomitant]
     Active Substance: NAPROXEN
  2. XELJANZ [Suspect]
     Active Substance: TOFACITINIB CITRATE
     Indication: RHEUMATOID ARTHRITIS
     Route: 048
     Dates: start: 20180316, end: 20180716
  3. FOLIC ACID. [Concomitant]
     Active Substance: FOLIC ACID
  4. D [Concomitant]
  5. METHOTREXATE UNK UNK [Suspect]
     Active Substance: METHOTREXATE
  6. OMEPRAZOLE. [Concomitant]
     Active Substance: OMEPRAZOLE

REACTIONS (3)
  - Hepatic enzyme increased [None]
  - Rheumatoid arthritis [None]
  - Pneumonia [None]

NARRATIVE: CASE EVENT DATE: 201807
